FAERS Safety Report 5876923-3 (Version None)
Quarter: 2008Q3

REPORT INFORMATION
  Report Type: 
  Country: None (occurrence: None)
  Receive Date: 20080910
  Receipt Date: 20080903
  Transmission Date: 20090109
  Serious: Yes (Hospitalization)
  Sender: FDA-Public Use
  Company Number: CN-ASTRAZENECA-2008AP05202

PATIENT
  Age: 68 Year
  Sex: Male

DRUGS (3)
  1. IRESSA [Suspect]
     Indication: LUNG NEOPLASM MALIGNANT
     Route: 048
     Dates: start: 20080620, end: 20080628
  2. GEMCITABINE [Concomitant]
     Dosage: 2 CYCLES
  3. NEDAPLATIN [Concomitant]
     Dosage: 2 CYCLES

REACTIONS (1)
  - PLATELET COUNT INCREASED [None]
